FAERS Safety Report 7477408-3 (Version None)
Quarter: 2011Q2

REPORT INFORMATION
  Report Type: 
  Country: None (occurrence: None)
  Receive Date: 20110513
  Receipt Date: 20110504
  Transmission Date: 20111010
  Serious: No
  Sender: FDA-Public Use
  Company Number: US-BIOGENIDEC-2011BI017062

PATIENT
  Sex: Male

DRUGS (1)
  1. TYSABRI [Suspect]
     Indication: MULTIPLE SCLEROSIS
     Route: 042
     Dates: start: 20110429

REACTIONS (8)
  - DRY EYE [None]
  - ASTIGMATISM [None]
  - HEART RATE INCREASED [None]
  - ASTHENOPIA [None]
  - OCULAR HYPERAEMIA [None]
  - BLOOD PRESSURE INCREASED [None]
  - EYE IRRITATION [None]
  - CHEST PAIN [None]
